FAERS Safety Report 7753098-7 (Version None)
Quarter: 2011Q3

REPORT INFORMATION
  Report Type: 
  Country: None (occurrence: None)
  Receive Date: 20110913
  Receipt Date: 20110831
  Transmission Date: 20111222
  Serious: Yes (Other)
  Sender: FDA-Public Use
  Company Number: 2011MA011814

PATIENT
  Age: 89 Year
  Sex: Female

DRUGS (2)
  1. INFLUEZA VIRUS [Concomitant]
  2. DONEPEZIL HYDROCHLORIDE [Suspect]
     Dates: start: 20110110

REACTIONS (3)
  - CIRCULATORY COLLAPSE [None]
  - BRADYCARDIA [None]
  - HEART RATE DECREASED [None]
